FAERS Safety Report 24178862 (Version 1)
Quarter: 2024Q3

REPORT INFORMATION
  Report Type: Spontaneous
  Country: GB (occurrence: GB)
  Receive Date: 20240806
  Receipt Date: 20240806
  Transmission Date: 20241017
  Serious: Yes (Other)
  Sender: Atnahs Healthcare
  Company Number: None

PATIENT
  Age: 62 Year
  Sex: Female
  Weight: 62 kg

DRUGS (4)
  1. NAPROXEN [Suspect]
     Active Substance: NAPROXEN
     Indication: Arthralgia
     Dates: start: 20240605
  2. NAPROXEN [Suspect]
     Active Substance: NAPROXEN
     Indication: Back pain
  3. OMEPRAZOLE [Suspect]
     Active Substance: OMEPRAZOLE
     Indication: Arthralgia
     Dates: start: 20240605
  4. OMEPRAZOLE [Suspect]
     Active Substance: OMEPRAZOLE
     Indication: Back pain

REACTIONS (9)
  - Abdominal distension [Unknown]
  - Product use complaint [Unknown]
  - Oesophageal pain [Unknown]
  - Muscle spasms [Unknown]
  - Depressed mood [Unknown]
  - Lethargy [Unknown]
  - Flatulence [Unknown]
  - Constipation [Unknown]
  - Decreased appetite [Unknown]
